FAERS Safety Report 8209606-5 (Version None)
Quarter: 2012Q1

REPORT INFORMATION
  Report Type: 
  Country: None (occurrence: None)
  Receive Date: 20120314
  Receipt Date: 20120307
  Transmission Date: 20120608
  Serious: Yes (Life-Threatening, Hospitalization)
  Sender: FDA-Public Use
  Company Number: CA-ASTRAZENECA-2011SE67286

PATIENT
  Age: 16 Year
  Sex: Female
  Weight: 60 kg

DRUGS (3)
  1. RITALIN [Suspect]
     Route: 065
     Dates: start: 20091117, end: 20091127
  2. SEROQUEL [Suspect]
     Route: 048
     Dates: start: 20080501
  3. STRATTERA [Suspect]
     Route: 048
     Dates: start: 20090301

REACTIONS (7)
  - HAEMOGLOBIN DECREASED [None]
  - VIRAL INFECTION [None]
  - PETECHIAE [None]
  - BACTERIAL INFECTION [None]
  - APLASIA [None]
  - ECCHYMOSIS [None]
  - FATIGUE [None]
